FAERS Safety Report 19245879 (Version 1)
Quarter: 2021Q2

REPORT INFORMATION
  Report Type: Spontaneous
  Country: US (occurrence: US)
  Receive Date: 20210512
  Receipt Date: 20210512
  Transmission Date: 20210717
  Serious: Yes (Other)
  Sender: FDA-Public Use
  Company Number: US-NOVEN PHARMACEUTICALS, INC.-2021-NOV-US003398

PATIENT
  Sex: Male
  Weight: 43.08 kg

DRUGS (3)
  1. BUSPAR [Concomitant]
     Active Substance: BUSPIRONE HYDROCHLORIDE
     Indication: PRODUCT USED FOR UNKNOWN INDICATION
     Dosage: 15 MG, UNK
  2. QUINIDINE [Concomitant]
     Active Substance: QUINIDINE
     Indication: PRODUCT USED FOR UNKNOWN INDICATION
     Dosage: 2 MG, UNK
  3. DAYTRANA [Suspect]
     Active Substance: METHYLPHENIDATE
     Indication: ATTENTION DEFICIT HYPERACTIVITY DISORDER
     Dosage: 15 MG/9HRS, UNK
     Route: 062
     Dates: start: 202009

REACTIONS (4)
  - Product administration error [Not Recovered/Not Resolved]
  - No adverse event [Unknown]
  - Device breakage [Not Recovered/Not Resolved]
  - Device adhesion issue [Not Recovered/Not Resolved]

NARRATIVE: CASE EVENT DATE: 2021
